FAERS Safety Report 9555850 (Version 1)
Quarter: 2013Q3

REPORT INFORMATION
  Report Type: Spontaneous
  Country: US (occurrence: None)
  Receive Date: 20130925
  Receipt Date: 20130925
  Transmission Date: 20140515
  Serious: Yes (Other)
  Sender: FDA-Public Use
  Company Number: None

PATIENT
  Age: 71 Year
  Sex: Male
  Weight: 76.2 kg

DRUGS (1)
  1. DORZOLAMIDE HCL/TIMOLOL MALEATE [Suspect]
     Indication: GLAUCOMA
     Route: 047
     Dates: start: 20130826, end: 20130903

REACTIONS (5)
  - Product substitution issue [None]
  - Instillation site discomfort [None]
  - Instillation site pain [None]
  - Visual acuity reduced [None]
  - Reaction to preservatives [None]
